FAERS Safety Report 13358687 (Version 8)
Quarter: 2017Q4

REPORT INFORMATION
  Report Type: Spontaneous
  Country: US (occurrence: US)
  Receive Date: 20170322
  Receipt Date: 20171024
  Transmission Date: 20180320
  Serious: Yes (Hospitalization, Other)
  Sender: FDA-Public Use
  Company Number: US-SA-2017SA032793

PATIENT
  Age: 86 Year
  Sex: Male
  Weight: 72.57 kg

DRUGS (11)
  1. LANTUS SOLOSTAR [Suspect]
     Active Substance: INSULIN GLARGINE
     Indication: TYPE 1 DIABETES MELLITUS
     Dosage: 10-15 UNITS BID
     Route: 051
     Dates: start: 19941115
  2. SOLOSTAR [Suspect]
     Active Substance: DEVICE
     Indication: DIABETES MELLITUS
     Dates: start: 201612, end: 201612
  3. LANTUS SOLOSTAR [Suspect]
     Active Substance: INSULIN GLARGINE
     Indication: TYPE 1 DIABETES MELLITUS
     Dosage: DOSE:6 UNIT(S)
     Route: 051
  4. NOVOLIN R [Concomitant]
     Active Substance: INSULIN HUMAN
  5. LANTUS SOLOSTAR [Suspect]
     Active Substance: INSULIN GLARGINE
     Indication: TYPE 1 DIABETES MELLITUS
     Dosage: PATIENT USED THE DRUG IN ON AND OFF REGIMEN DOSE:10 UNIT(S)
     Route: 051
     Dates: end: 201612
  6. LANTUS SOLOSTAR [Suspect]
     Active Substance: INSULIN GLARGINE
     Indication: TYPE 1 DIABETES MELLITUS
     Dosage: DOSE:10 UNIT(S)
     Route: 051
     Dates: start: 201612, end: 201612
  7. SOLOSTAR [Suspect]
     Active Substance: DEVICE
     Indication: DIABETES MELLITUS
     Dates: end: 201612
  8. NOVOLIN R [Concomitant]
     Active Substance: INSULIN HUMAN
     Dosage: DOSE:22 UNIT(S)
     Dates: start: 20151228
  9. LANTUS SOLOSTAR [Suspect]
     Active Substance: INSULIN GLARGINE
     Indication: TYPE 1 DIABETES MELLITUS
     Dosage: PATIENT USED THE DRUG IN ON AND OFF REGIMEN DOSE:12 UNIT(S)
     Route: 051
     Dates: end: 2015
  10. SOLOSTAR [Suspect]
     Active Substance: DEVICE
     Indication: DIABETES MELLITUS
     Dates: end: 2015
  11. SOLOSTAR [Suspect]
     Active Substance: DEVICE
     Indication: DIABETES MELLITUS
     Dates: start: 19941115

REACTIONS (13)
  - Loss of consciousness [Unknown]
  - Malaise [Unknown]
  - Unevaluable event [Unknown]
  - Drug ineffective [Unknown]
  - Cardiac failure [Unknown]
  - Eye disorder [Unknown]
  - Diarrhoea [Unknown]
  - Joint swelling [Recovering/Resolving]
  - Blood glucose abnormal [Unknown]
  - Product use issue [Unknown]
  - Heart rate decreased [Not Recovered/Not Resolved]
  - Pain in extremity [Recovering/Resolving]
  - Dyspnoea [Unknown]

NARRATIVE: CASE EVENT DATE: 19941130
